FAERS Safety Report 9220365 (Version 1)
Quarter: 2013Q2

REPORT INFORMATION
  Report Type: Spontaneous
  Country: US (occurrence: None)
  Receive Date: 20130408
  Receipt Date: 20130408
  Transmission Date: 20140414
  Serious: No
  Sender: FDA-Public Use
  Company Number: DL2013-0235

PATIENT
  Age: 24 Year
  Sex: Female

DRUGS (3)
  1. MIFEPRISTONE [Suspect]
     Indication: ABORTION INDUCED
     Dosage: 200 MG, ORAL?1/17/13
     Route: 048
     Dates: start: 20130117
  2. MISOPROSTOL [Suspect]
     Indication: ABORTION INDUCED
     Dosage: 800 MCG, BUCCAL?1/18/13
     Route: 002
     Dates: start: 20130118
  3. DOXYCYCLINE [Concomitant]

REACTIONS (1)
  - Pregnancy [None]
